FAERS Safety Report 6453349-5 (Version None)
Quarter: 2009Q4

REPORT INFORMATION
  Report Type: 
  Country: None (occurrence: None)
  Receive Date: 20091123
  Receipt Date: 20091123
  Transmission Date: 20100525
  Serious: Yes (Other)
  Sender: FDA-Public Use
  Company Number: None

PATIENT
  Age: 54 Year
  Sex: Female
  Weight: 108.8633 kg

DRUGS (3)
  1. LANSOPRAZOLE [Suspect]
     Indication: ABDOMINAL PAIN UPPER
     Dosage: 30 MG TWICE DAILY PO
     Route: 048
     Dates: start: 20091121, end: 20091122
  2. LANSOPRAZOLE [Suspect]
     Indication: GASTROOESOPHAGEAL REFLUX DISEASE
     Dosage: 30 MG TWICE DAILY PO
     Route: 048
     Dates: start: 20091121, end: 20091122
  3. LANSOPRAZOLE [Suspect]
     Indication: HIATUS HERNIA
     Dosage: 30 MG TWICE DAILY PO
     Route: 048
     Dates: start: 20091121, end: 20091122

REACTIONS (2)
  - DRUG INEFFECTIVE [None]
  - PRODUCT SUBSTITUTION ISSUE [None]
